FAERS Safety Report 18525629 (Version 1)
Quarter: 2020Q4

REPORT INFORMATION
  Report Type: Spontaneous
  Country: MY (occurrence: MY)
  Receive Date: 20201120
  Receipt Date: 20201120
  Transmission Date: 20210114
  Serious: Yes (Other)
  Sender: FDA-Public Use
  Company Number: MY-LUPIN PHARMACEUTICALS INC.-2020-09070

PATIENT
  Age: 67 Year
  Sex: Male

DRUGS (10)
  1. SPIRONOLACTONE. [Interacting]
     Active Substance: SPIRONOLACTONE
     Indication: DIURETIC THERAPY
     Dosage: 50 MILLIGRAM, BID
     Route: 065
     Dates: start: 2019, end: 2019
  2. AMLODIPINE [Suspect]
     Active Substance: AMLODIPINE BESYLATE
     Indication: ESSENTIAL HYPERTENSION
     Dosage: 10 MILLIGRAM, QD
     Route: 065
  3. METOPROLOL. [Interacting]
     Active Substance: METOPROLOL
     Indication: ESSENTIAL HYPERTENSION
     Dosage: 100 MILLIGRAM, BID
     Route: 065
     Dates: start: 2019, end: 2019
  4. METHYLDOPA. [Interacting]
     Active Substance: METHYLDOPA
     Indication: ESSENTIAL HYPERTENSION
     Dosage: 1 GRAM, TID
     Route: 065
     Dates: start: 2019, end: 2019
  5. FELODIPINE. [Interacting]
     Active Substance: FELODIPINE
     Indication: ESSENTIAL HYPERTENSION
     Dosage: 10 MILLIGRAM, BID
     Route: 065
     Dates: start: 2019, end: 2019
  6. SPIRONOLACTONE. [Interacting]
     Active Substance: SPIRONOLACTONE
     Indication: ESSENTIAL HYPERTENSION
  7. PYRIDOXINE [Concomitant]
     Active Substance: PYRIDOXINE
     Indication: PULMONARY TUBERCULOSIS
     Dosage: 10 MILLIGRAM, BID
     Route: 065
  8. AKURIT-4 [Interacting]
     Active Substance: ETHAMBUTOL HYDROCHLORIDE\ISONIAZID\PYRAZINAMIDE\RIFAMYCIN
     Indication: PULMONARY TUBERCULOSIS
     Dosage: 3 DOSAGE FORM, QD
     Route: 065
     Dates: start: 2019, end: 201910
  9. ENALAPRIL [Interacting]
     Active Substance: ENALAPRIL
     Indication: ESSENTIAL HYPERTENSION
     Dosage: 20 MILLIGRAM, BID
     Route: 065
     Dates: start: 2019, end: 2019
  10. PRAZOSIN. [Interacting]
     Active Substance: PRAZOSIN
     Indication: ESSENTIAL HYPERTENSION
     Dosage: 5 MILLIGRAM, QID
     Route: 065
     Dates: start: 2019, end: 2019

REACTIONS (2)
  - Drug interaction [Unknown]
  - Hypertension [Recovered/Resolved]

NARRATIVE: CASE EVENT DATE: 2019
